FAERS Safety Report 16974553 (Version 1)
Quarter: 2019Q4

REPORT INFORMATION
  Report Type: Spontaneous
  Country: US (occurrence: US)
  Receive Date: 20190912
  Receipt Date: 20190912
  Transmission Date: 20200122
  Serious: Yes (Hospitalization)
  Sender: FDA-Public Use
  Company Number: None

PATIENT
  Age: 72 Year
  Sex: Male
  Weight: 67.99 kg

DRUGS (1)
  1. SUCCINYLCHOLINE [Suspect]
     Active Substance: SUCCINYLCHOLINE
     Indication: ENDOTRACHEAL INTUBATION
     Dates: start: 20190523, end: 20190523

REACTIONS (4)
  - Apnoea [None]
  - Pseudocholinesterase deficiency [None]
  - Muscular weakness [None]
  - Respiratory depression [None]

NARRATIVE: CASE EVENT DATE: 20190523
